FAERS Safety Report 17544464 (Version 1)
Quarter: 2020Q1

REPORT INFORMATION
  Report Type: Spontaneous
  Country: CH (occurrence: CH)
  Receive Date: 20200316
  Receipt Date: 20200316
  Transmission Date: 20200409
  Serious: Yes (Hospitalization)
  Sender: FDA-Public Use
  Company Number: CH-PFIZER INC-2020103405

PATIENT
  Age: 65 Year
  Sex: Male
  Weight: 90 kg

DRUGS (28)
  1. VORICONAZOLE PFIZER [Suspect]
     Active Substance: VORICONAZOLE
     Indication: CEREBRAL ASPERGILLOSIS
     Dosage: 250 MG, 2X/DAY
     Route: 048
     Dates: start: 20200201, end: 20200204
  2. VORICONAZOLE PFIZER [Suspect]
     Active Substance: VORICONAZOLE
     Indication: BRONCHOPULMONARY ASPERGILLOSIS
     Dosage: 200 MG, 2X/DAY
     Route: 048
     Dates: start: 20200205, end: 20200211
  3. ALDACTONE [Concomitant]
     Active Substance: SPIRONOLACTONE
     Dosage: 100 MG, 1X/DAY, 1-0-0
  4. BECOZYME C FORTE [Concomitant]
     Active Substance: ASCORBIC ACID\BIOTIN\CALCIUM PANTOTHENATE\CYANOCOBALAMIN\FOLIC ACID\NIACINAMIDE\PYRIDOXINE HYDROCHLORIDE\RIBOFLAVIN\THIAMINE HYDROCHLORIDE
     Dosage: 1 DF, 1X/DAY 1-0-0
  5. VORICONAZOLE PFIZER [Suspect]
     Active Substance: VORICONAZOLE
     Indication: CEREBRAL ASPERGILLOSIS
     Dosage: 250 MG, DAILY (9:00 A.M.)
     Route: 041
     Dates: start: 20200128, end: 20200128
  6. VORICONAZOLE PFIZER [Suspect]
     Active Substance: VORICONAZOLE
     Indication: BRONCHOPULMONARY ASPERGILLOSIS
     Dosage: 250 MG, DAILY (9:00 A.M.)
     Route: 041
     Dates: start: 20200129, end: 20200129
  7. VORICONAZOLE PFIZER [Suspect]
     Active Substance: VORICONAZOLE
     Dosage: 180 MG, 2X/DAY
     Route: 041
     Dates: start: 20200130, end: 20200130
  8. AMBISOME LYOPHILISIERTES [Suspect]
     Active Substance: AMPHOTERICIN B\CHOLESTEROL
     Indication: BRONCHOPULMONARY ASPERGILLOSIS
     Dosage: 5 MG/KG, (450 MG)
     Route: 041
     Dates: end: 20200131
  9. DUPHALAC [Concomitant]
     Active Substance: LACTULOSE
     Dosage: 30 ML, 2X/DAY 30 ML-0-30 ML
  10. KONAKION [Concomitant]
     Active Substance: PHYTONADIONE
     Dosage: 1 DF, 1X/DAY 1-0-0
     Dates: start: 20191230
  11. MEDROL [Suspect]
     Active Substance: METHYLPREDNISOLONE
     Indication: VESTIBULAR DISORDER
     Dosage: 125 MG, 1X/DAY
     Route: 048
     Dates: start: 20191218, end: 20200102
  12. VORICONAZOLE PFIZER [Suspect]
     Active Substance: VORICONAZOLE
     Dosage: 180 MG, DAILY (9:00 A.M.)
     Route: 041
     Dates: end: 20200131
  13. TIENAM [Suspect]
     Active Substance: CILASTATIN SODIUM\IMIPENEM
     Indication: TRACHEOBRONCHITIS
     Dosage: 500 MG, 4X/DAY
     Route: 042
     Dates: end: 20200131
  14. XIFAXAN [Concomitant]
     Active Substance: RIFAXIMIN
     Dosage: 550 MG, 2X/DAY 1-0-1
  15. KEPPRA [Concomitant]
     Active Substance: LEVETIRACETAM
     Dosage: 2 DF, DAILY 1-0-1
     Dates: start: 20200112
  16. TIENAM [Suspect]
     Active Substance: CILASTATIN SODIUM\IMIPENEM
     Indication: CARDIAC INFECTION
  17. ALDACTONE [Concomitant]
     Active Substance: SPIRONOLACTONE
     Dosage: 50 MG, 1X/DAY
     Dates: start: 20200117, end: 20200131
  18. FRAGMIN [Concomitant]
     Active Substance: DALTEPARIN SODIUM
     Dosage: 2500 IU, 1X/DAY
     Dates: start: 20200129
  19. TEMESTA EXPIDET [Concomitant]
     Active Substance: LORAZEPAM
     Dosage: 1 DF, AS NEEDED AT NIGHT
  20. HEPARIN SODIUM. [Concomitant]
     Active Substance: HEPARIN SODIUM
     Dosage: 1 DF, UNK
     Route: 041
     Dates: start: 20200115, end: 20200124
  21. VORICONAZOLE PFIZER [Suspect]
     Active Substance: VORICONAZOLE
     Dosage: 180 MG, DAILY (9:00 P.M.)
     Route: 041
     Dates: start: 20200129, end: 20200129
  22. AMBISOME LYOPHILISIERTES [Suspect]
     Active Substance: AMPHOTERICIN B\CHOLESTEROL
     Indication: CEREBRAL ASPERGILLOSIS
  23. CARVEDILOL. [Concomitant]
     Active Substance: CARVEDILOL
     Dosage: 1 DF, DAILY 0.5-0-0.5
     Dates: start: 20200116
  24. KEPPRA [Concomitant]
     Active Substance: LEVETIRACETAM
     Indication: MYOCLONUS
     Dosage: 2 DF, DAILY 1-0-1
     Dates: start: 20200112
  25. MEDROL [Suspect]
     Active Substance: METHYLPREDNISOLONE
     Dosage: 32 MG, ON ENTRY
     Route: 048
     Dates: start: 20191227, end: 20191227
  26. BENERVA [Concomitant]
     Active Substance: THIAMINE HYDROCHLORIDE
     Dosage: 1 DF, 1X/DAY 1-0-0
  27. ESOMEP [ESOMEPRAZOLE SODIUM] [Concomitant]
     Active Substance: ESOMEPRAZOLE SODIUM
     Dosage: STOP BECAUSE OF THE RISK OF KINETIC INTERACTION WITH VORICONAZOLE
     Dates: start: 20200120, end: 20200131
  28. REDORMIN [HUMULUS LUPULUS HOPS;VALERIANA OFFICINALIS ROOT] [Concomitant]
     Active Substance: HERBALS\HOPS\VALERIAN
     Dosage: 1 DF, AS NEEDED AT NIGHT

REACTIONS (5)
  - Hypopituitarism [Not Recovered/Not Resolved]
  - Bronchopulmonary aspergillosis [Recovering/Resolving]
  - Cerebral aspergillosis [Recovering/Resolving]
  - Prescribed overdose [Recovering/Resolving]
  - Acute kidney injury [Recovering/Resolving]

NARRATIVE: CASE EVENT DATE: 20200106
